FAERS Safety Report 5905771-0 (Version None)
Quarter: 2008Q4

REPORT INFORMATION
  Report Type: 
  Country: None (occurrence: None)
  Receive Date: 20081002
  Receipt Date: 20080926
  Transmission Date: 20090506
  Serious: Yes (Other)
  Sender: FDA-Public Use
  Company Number: A0749441A

PATIENT
  Sex: Male

DRUGS (1)
  1. ALTABAX [Suspect]
     Indication: STAPHYLOCOCCAL INFECTION
     Dosage: 1APP CYCLIC
     Route: 045

REACTIONS (5)
  - DEAFNESS UNILATERAL [None]
  - EAR DISCOMFORT [None]
  - EAR DISORDER [None]
  - EPISTAXIS [None]
  - MEDICATION ERROR [None]
